FAERS Safety Report 20615559 (Version 1)
Quarter: 2022Q1

REPORT INFORMATION
  Report Type: Spontaneous
  Country: US (occurrence: US)
  Receive Date: 20220321
  Receipt Date: 20220321
  Transmission Date: 20220424
  Serious: Yes (Hospitalization, Other)
  Sender: FDA-Public Use
  Company Number: US-RICONPHARMA, LLC-2022RIC000002

PATIENT
  Age: 54 Year
  Sex: Male

DRUGS (1)
  1. DICLOFENAC [Suspect]
     Active Substance: DICLOFENAC
     Indication: Arthritis
     Dosage: UNK
     Route: 048

REACTIONS (3)
  - Oesophageal disorder [Recovered/Resolved]
  - Decreased appetite [Unknown]
  - Abnormal loss of weight [Unknown]
